FAERS Safety Report 10547619 (Version 3)
Quarter: 2015Q1

REPORT INFORMATION
  Report Type: Spontaneous
  Country: US (occurrence: US)
  Receive Date: 20141028
  Receipt Date: 20150119
  Transmission Date: 20150720
  Serious: Yes (Other)
  Sender: FDA-Public Use
  Company Number: US-BEH-2014045769

PATIENT
  Sex: Female

DRUGS (1)
  1. PRIVIGEN [Suspect]
     Active Substance: HUMAN IMMUNOGLOBULIN G
     Dosage: ??-???-2008

REACTIONS (4)
  - Pleural effusion [Unknown]
  - Pleural infection [Unknown]
  - Fungal infection [Unknown]
  - Respiratory tract infection [Unknown]
